FAERS Safety Report 6193691-9 (Version None)
Quarter: 2009Q2

REPORT INFORMATION
  Report Type: 
  Country: None (occurrence: None)
  Receive Date: 20090518
  Receipt Date: 20090511
  Transmission Date: 20091009
  Serious: Yes (Hospitalization)
  Sender: FDA-Public Use
  Company Number: AT-B.I. PHARMACEUTICALS,INC./RIDGEFIELD-2008-AP-00207AP

PATIENT
  Sex: Female
  Weight: 79 kg

DRUGS (3)
  1. SIFROL [Suspect]
     Indication: RESTLESS LEGS SYNDROME
     Dosage: .088MG
     Dates: start: 20071214
  2. SIFROL [Suspect]
     Dosage: .35MG
     Dates: start: 20080108
  3. SIFROL [Suspect]
     Dosage: .7MG
     Dates: start: 20080229

REACTIONS (2)
  - EPILEPSY [None]
  - MYOCLONIC EPILEPSY [None]
